FAERS Safety Report 4523758-X (Version None)
Quarter: 2005Q1

REPORT INFORMATION
  Report Type: 
  Country: None (occurrence: None)
  Receive Date: 20041101
  Receipt Date: 20040119
  Transmission Date: 20050727
  Serious: Yes (Hospitalization, Other)
  Sender: FDA-Public Use
  Company Number: HQWYE483820JAN04

PATIENT
  Age: 58 Year
  Sex: Female
  Weight: 68.1 kg

DRUGS (3)
  1. PREMARIN [Suspect]
     Indication: OESTROGEN REPLACEMENT THERAPY
     Dosage: 0.9 MG, DAILY, ORAL
     Route: 048
     Dates: start: 19700101, end: 19990501
  2. UNSPECIFIED ANTIHYPERTENSIVE AGENT [Concomitant]
  3. UNSPECIFIED BETA BLOCKER [Concomitant]

REACTIONS (2)
  - BREAST CANCER [None]
  - BREAST DISCHARGE [None]
